FAERS Safety Report 5449318-4 (Version None)
Quarter: 2007Q3

REPORT INFORMATION
  Report Type: 
  Country: None (occurrence: None)
  Receive Date: 20070907
  Receipt Date: 20070822
  Transmission Date: 20080115
  Serious: Yes (Death, Hospitalization, Other)
  Sender: FDA-Public Use
  Company Number: 2007US002093

PATIENT
  Age: 10 Year
  Sex: Male

DRUGS (13)
  1. AMBISOME [Suspect]
     Indication: SYSTEMIC CANDIDA
     Dosage: 2.5 MG/KG, UID/QD, IV NOS, 5 MG/KG, UID/QD, IV NOS
     Route: 042
     Dates: start: 20070711, end: 20070717
  2. AMBISOME [Suspect]
     Indication: SYSTEMIC CANDIDA
     Dosage: 2.5 MG/KG, UID/QD, IV NOS, 5 MG/KG, UID/QD, IV NOS
     Route: 042
     Dates: start: 20070718, end: 20070724
  3. LORAZEPAM [Concomitant]
  4. ELEMENMIC (MINERALS NOS) [Concomitant]
  5. BAKTAR (SULFAMETHOXAZOLE, TRIMETHOPRIM) [Concomitant]
  6. ARTANE (TRIHEXYPHENDYL HYDROCHLORIDE) [Concomitant]
  7. SOLUTIONS FOR PARENTERAL NUTRITION [Concomitant]
  8. RISUMIC (AMEZINIUM METILSULFATE) [Concomitant]
  9. DECADRON [Concomitant]
  10. CEFTAZIDIME [Concomitant]
  11. NEUTROGIN (LENOGRASTIM) [Concomitant]
  12. CANDESARTAN CILEXETIL [Concomitant]
  13. NEON-MINOPHAGEN C (GLYCYRRHIZIC ACID, AMMONIUM SALT) [Concomitant]

REACTIONS (12)
  - CEREBRAL INFARCTION [None]
  - CONVULSION [None]
  - DRUG INEFFECTIVE [None]
  - GENERAL PHYSICAL HEALTH DETERIORATION [None]
  - MALIGNANT NEOPLASM PROGRESSION [None]
  - MEDULLOBLASTOMA RECURRENT [None]
  - MENINGITIS [None]
  - MYDRIASIS [None]
  - PUPILLARY LIGHT REFLEX TESTS ABNORMAL [None]
  - RESPIRATORY DISTRESS [None]
  - RESPIRATORY FAILURE [None]
  - UNRESPONSIVE TO STIMULI [None]
